FAERS Safety Report 25477205 (Version 1)
Quarter: 2025Q2

REPORT INFORMATION
  Report Type: Spontaneous
  Country: PT (occurrence: PT)
  Receive Date: 20250625
  Receipt Date: 20250625
  Transmission Date: 20250716
  Serious: No
  Sender: ALKEM
  Company Number: PT-ALKEM LABORATORIES LIMITED-PT-ALKEM-2025-03013

PATIENT
  Age: 25 Year
  Sex: Female
  Weight: 71 kg

DRUGS (12)
  1. CINACALCET [Suspect]
     Active Substance: CINACALCET
     Indication: Hyperparathyroidism primary
     Dosage: 30 MILLIGRAM, QD (INITIAL DOSE AT 12 WEEKS AND 1 DAY OF GESTATION)
     Route: 065
  2. CINACALCET [Suspect]
     Active Substance: CINACALCET
     Dosage: 60 MILLIGRAM, QD (INCREASED DOSE AFTER 3 WEEKS)
     Route: 065
  3. CINACALCET [Suspect]
     Active Substance: CINACALCET
     Route: 065
  4. ASPIRIN [Suspect]
     Active Substance: ASPIRIN
     Indication: Pre-eclampsia
     Route: 065
  5. ASPIRIN [Suspect]
     Active Substance: ASPIRIN
     Indication: Prophylaxis
  6. CALCIUM CARBONATE [Suspect]
     Active Substance: CALCIUM CARBONATE
     Indication: Blood parathyroid hormone decreased
     Dosage: 1500 MILLIGRAM, TID (THREE TIMES PER DAY)
     Route: 065
  7. CALCIUM CARBONATE [Suspect]
     Active Substance: CALCIUM CARBONATE
     Dosage: 1500 MILLIGRAM, QD (TAPERED DOSE DAILY)
     Route: 065
  8. CHOLECALCIFEROL [Suspect]
     Active Substance: CHOLECALCIFEROL
     Indication: Hypercalcaemia
     Route: 065
  9. CHOLECALCIFEROL [Suspect]
     Active Substance: CHOLECALCIFEROL
     Dosage: 0.25 MICROGRAM, BID (CALCITRIOL)
     Route: 065
  10. CHOLECALCIFEROL [Suspect]
     Active Substance: CHOLECALCIFEROL
     Dosage: 0.25 MICROGRAM, QD (CALCITRIOL TAPERED DAILY)
     Route: 065
  11. FOLIC ACID [Suspect]
     Active Substance: FOLIC ACID
     Indication: Supplementation therapy
     Dosage: 5 MILLIGRAM, QD
     Route: 065
  12. MAGNESIUM [Suspect]
     Active Substance: MAGNESIUM
     Indication: Supplementation therapy
     Route: 065

REACTIONS (1)
  - Exposure during pregnancy [Unknown]
